FAERS Safety Report 6109203-1 (Version None)
Quarter: 2009Q1

REPORT INFORMATION
  Report Type: 
  Country: None (occurrence: None)
  Receive Date: 20090310
  Receipt Date: 20090226
  Transmission Date: 20090719
  Serious: Yes (Other)
  Sender: FDA-Public Use
  Company Number: PHHY2009JP04225

PATIENT
  Age: 39 Year
  Sex: Male

DRUGS (5)
  1. CYCLOSPORINE [Suspect]
     Indication: PSORIASIS
     Dosage: 3 MG/KG/DAY
     Dates: start: 20030101
  2. NEORAL [Suspect]
     Indication: PSORIASIS
     Dosage: 175 MG/DAY
     Route: 048
     Dates: end: 20080401
  3. TIGASON [Concomitant]
     Dosage: UNK
     Dates: start: 20080401
  4. URSO 250 [Concomitant]
     Dosage: UNK
     Route: 048
  5. LIVACT [Concomitant]
     Dosage: UNK
     Route: 048

REACTIONS (1)
  - RASH [None]
